FAERS Safety Report 20219215 (Version 1)
Quarter: 2021Q4

REPORT INFORMATION
  Report Type: Spontaneous
  Country: US (occurrence: None)
  Receive Date: 20211222
  Receipt Date: 20211222
  Transmission Date: 20220303
  Serious: Yes (Other)
  Sender: FDA-Public Use
  Company Number: None

PATIENT
  Age: 15 Year
  Sex: Female
  Weight: 37.3 kg

DRUGS (2)
  1. REGEN-COV [Suspect]
     Active Substance: CASIRIVIMAB\IMDEVIMAB
     Indication: SARS-CoV-2 antibody test positive
     Dosage: OTHER FREQUENCY : ONCE;?
     Route: 045
     Dates: start: 20211218, end: 20211218
  2. REGEN COV-2 [Concomitant]
     Dates: start: 20211218, end: 20211218

REACTIONS (1)
  - Off label use [None]

NARRATIVE: CASE EVENT DATE: 20211218
